FAERS Safety Report 5117135-0 (Version None)
Quarter: 2006Q3

REPORT INFORMATION
  Report Type: 
  Country: None (occurrence: None)
  Receive Date: 20060929
  Receipt Date: 20060918
  Transmission Date: 20061208
  Serious: Yes (Hospitalization)
  Sender: FDA-Public Use
  Company Number: IT-ABBOTT-06P-083-0344063-00

PATIENT
  Sex: Female

DRUGS (3)
  1. KALETRA [Suspect]
     Indication: HIV INFECTION
     Route: 048
     Dates: start: 20060628, end: 20060703
  2. STAVUDINE [Concomitant]
     Indication: SYSTEMIC ANTIVIRAL TREATMENT
  3. LAMIVUDINE [Concomitant]
     Indication: SYSTEMIC ANTIVIRAL TREATMENT

REACTIONS (4)
  - CYTOLYTIC HEPATITIS [None]
  - HEPATIC FAILURE [None]
  - RENAL FAILURE [None]
  - STEVENS-JOHNSON SYNDROME [None]
